FAERS Safety Report 4859713-X (Version None)
Quarter: 2005Q4

REPORT INFORMATION
  Report Type: 
  Country: None (occurrence: None)
  Receive Date: 20051215
  Receipt Date: 20051202
  Transmission Date: 20060501
  Serious: Yes (Death)
  Sender: FDA-Public Use
  Company Number: CAO05001098

PATIENT
  Age: 75 Year
  Sex: Female
  Weight: 27.2 kg

DRUGS (4)
  1. PEPTO-BISMOL ORIGINAL FORMULA, ORIGINAL FLAVOR(BISMUTH SUBSALICYLATE 2 [Suspect]
     Indication: STOMACH DISCOMFORT
     Dosage: 10 ML, 1 ONLY FOR 1 DAY, ORAL
     Route: 048
     Dates: start: 20051114, end: 20051114
  2. TRAZODONE HCL [Concomitant]
  3. ^NEBULIZER^ [Concomitant]
  4. ^INHALERS^ [Concomitant]

REACTIONS (2)
  - FOREIGN BODY ASPIRATION [None]
  - HEAD INJURY [None]
